FAERS Safety Report 20496632 (Version 1)
Quarter: 2022Q1

REPORT INFORMATION
  Report Type: Spontaneous
  Country: US (occurrence: US)
  Receive Date: 20220221
  Receipt Date: 20220221
  Transmission Date: 20220423
  Serious: No
  Sender: FDA-Public Use
  Company Number: US-BAUSCH-BL-2022-004504

PATIENT
  Age: 54 Year
  Sex: Female
  Weight: 52.210 kg

DRUGS (1)
  1. APRISO [Suspect]
     Active Substance: MESALAMINE
     Indication: Crohn^s disease
     Route: 048
     Dates: start: 20220207, end: 20220213

REACTIONS (3)
  - Hordeolum [Unknown]
  - Dermal cyst [Unknown]
  - Oral herpes [Unknown]

NARRATIVE: CASE EVENT DATE: 20220201
